FAERS Safety Report 7383456-4 (Version None)
Quarter: 2011Q1

REPORT INFORMATION
  Report Type: 
  Country: None (occurrence: None)
  Receive Date: 20110328
  Receipt Date: 20110328
  Transmission Date: 20110831
  Serious: Yes (Disabling)
  Sender: FDA-Public Use
  Company Number: None

PATIENT
  Age: 24 Year
  Sex: Female
  Weight: 57.6068 kg

DRUGS (1)
  1. MIRENA [Suspect]
     Indication: CONTRACEPTION
     Dosage: INSERTION 5 YEARS VAG
     Route: 067
     Dates: start: 20070501, end: 20110104

REACTIONS (3)
  - SKIN DISCOLOURATION [None]
  - ACNE [None]
  - SCAR [None]
